FAERS Safety Report 7992258-7 (Version None)
Quarter: 2011Q4

REPORT INFORMATION
  Report Type: 
  Country: None (occurrence: None)
  Receive Date: 20111219
  Receipt Date: 20110601
  Transmission Date: 20120403
  Serious: No
  Sender: FDA-Public Use
  Company Number: US-ASTRAZENECA-2011SE33800

PATIENT
  Age: 675 Month
  Sex: Female
  Weight: 51.7 kg

DRUGS (4)
  1. CRESTOR [Suspect]
     Indication: BLOOD CHOLESTEROL INCREASED
     Route: 048
     Dates: start: 20110101, end: 20110401
  2. ASPIRIN [Concomitant]
  3. CRESTOR [Suspect]
     Route: 048
     Dates: start: 20110501
  4. CRESTOR [Suspect]
     Route: 048
     Dates: start: 20110401, end: 20110501

REACTIONS (6)
  - WRONG TECHNIQUE IN DRUG USAGE PROCESS [None]
  - ARTHRALGIA [None]
  - MYALGIA [None]
  - MADAROSIS [None]
  - FATIGUE [None]
  - ALOPECIA [None]
